FAERS Safety Report 4897230-1 (Version None)
Quarter: 2006Q1

REPORT INFORMATION
  Report Type: 
  Country: None (occurrence: None)
  Receive Date: 20060127
  Receipt Date: 20060106
  Transmission Date: 20060701
  Serious: Yes (Life-Threatening, Hospitalization)
  Sender: FDA-Public Use
  Company Number: ACO_0206_2006

PATIENT
  Age: 61 Year
  Sex: Female

DRUGS (2)
  1. SIRDALUD [Suspect]
     Indication: MUSCLE SPASTICITY
     Dosage: 100 MG QD PO
     Route: 048
     Dates: start: 20050101, end: 20060102
  2. SIRDALUD [Suspect]
     Indication: MUSCLE SPASTICITY
     Dosage: 8 MG BID PO
     Route: 048
     Dates: start: 20060102

REACTIONS (4)
  - DYSPHAGIA [None]
  - HYPERTENSION [None]
  - LOSS OF CONSCIOUSNESS [None]
  - TACHYCARDIA [None]
